FAERS Safety Report 17347404 (Version 1)
Quarter: 2020Q1

REPORT INFORMATION
  Report Type: Report from Study
  Country: US (occurrence: US)
  Receive Date: 20200129
  Receipt Date: 20200129
  Transmission Date: 20200409
  Serious: No
  Sender: FDA-Public Use
  Company Number: US-EXELIXIS-CABO-19023023

PATIENT
  Sex: Female

DRUGS (1)
  1. CABOMETYX [Suspect]
     Active Substance: CABOZANTINIB S-MALATE
     Indication: PRODUCT USED FOR UNKNOWN INDICATION
     Dosage: 60 MG (30 MG, BID)
     Route: 048
     Dates: start: 20190730

REACTIONS (9)
  - Oral pain [Unknown]
  - Fatigue [Recovering/Resolving]
  - Tumour pain [Unknown]
  - Dysgeusia [Unknown]
  - Alopecia [Unknown]
  - Diarrhoea [Unknown]
  - Sleep disorder [Unknown]
  - Paraesthesia [Recovered/Resolved]
  - Glossodynia [Unknown]
